FAERS Safety Report 8978870 (Version 1)
Quarter: 2012Q4

REPORT INFORMATION
  Report Type: 
  Country: DE (occurrence: DE)
  Receive Date: 20121221
  Receipt Date: 20121221
  Transmission Date: 20130627
  Serious: Yes (Death, Hospitalization, Other)
  Sender: FDA-Public Use
  Company Number: DE-EISAI INC-E7389-03386-SPO-DE

PATIENT
  Sex: Female

DRUGS (1)
  1. HALAVEN [Suspect]
     Dosage: UNKNOWN
     Route: 041
     Dates: end: 201205

REACTIONS (5)
  - Pancytopenia [Fatal]
  - Stomatitis [Fatal]
  - Febrile neutropenia [Fatal]
  - Liver function test abnormal [Fatal]
  - Overdose [Unknown]
